FAERS Safety Report 14009063 (Version 1)
Quarter: 2017Q3

REPORT INFORMATION
  Report Type: Spontaneous
  Country: TN (occurrence: TN)
  Receive Date: 20170925
  Receipt Date: 20170925
  Transmission Date: 20171128
  Serious: Yes (Death, Congenital Anomaly)
  Sender: FDA-Public Use
  Company Number: TN-BAYER-2017-178274

PATIENT

DRUGS (4)
  1. CAPTOPRIL. [Suspect]
     Active Substance: CAPTOPRIL
     Route: 064
  2. CARVEDILOL. [Suspect]
     Active Substance: CARVEDILOL
     Dosage: UNK
     Route: 064
  3. ACETYLSALICYLIC ACID({=100 MG) [Suspect]
     Active Substance: ASPIRIN
     Dosage: UNK
     Route: 064
  4. SPIRONOLACTONE. [Suspect]
     Active Substance: SPIRONOLACTONE
     Dosage: UNK
     Route: 064

REACTIONS (3)
  - Small for dates baby [None]
  - Aorticopulmonary septal defect [Fatal]
  - Foetal exposure during pregnancy [None]
